FAERS Safety Report 25459528 (Version 1)
Quarter: 2025Q2

REPORT INFORMATION
  Report Type: Spontaneous
  Country: NL (occurrence: NL)
  Receive Date: 20250620
  Receipt Date: 20250620
  Transmission Date: 20250716
  Serious: Yes (Other)
  Sender: TOLMAR
  Company Number: NL-Tolmar-TLM-2025-03684

PATIENT
  Age: 39 Year

DRUGS (1)
  1. TESTOSTERONE UNDECANOATE [Suspect]
     Active Substance: TESTOSTERONE UNDECANOATE
     Indication: Hormone replacement therapy
     Route: 030
     Dates: start: 1997

REACTIONS (2)
  - Borderline serous tumour of ovary [Unknown]
  - Off label use [Unknown]
